FAERS Safety Report 17203097 (Version 1)
Quarter: 2019Q4

REPORT INFORMATION
  Report Type: Spontaneous
  Country: IT (occurrence: IT)
  Receive Date: 20191226
  Receipt Date: 20191226
  Transmission Date: 20200122
  Serious: Yes (Other)
  Sender: FDA-Public Use
  Company Number: IT-UCBSA-2019054618

PATIENT
  Age: 16 Year
  Sex: Male

DRUGS (4)
  1. VIMPAT [Suspect]
     Active Substance: LACOSAMIDE
     Indication: PARTIAL SEIZURES
     Dosage: 200 MILLIGRAM, DAILY
     Route: 048
     Dates: start: 20190902
  2. DEPAKIN CHRONO [VALPROATE SODIUM;VALPROIC ACID] [Suspect]
     Active Substance: VALPROIC ACID
     Indication: PARTIAL SEIZURES
     Dosage: 900 MILLIGRAM, DAILY
     Route: 048
  3. TALOXA [Suspect]
     Active Substance: FELBAMATE
     Indication: PARTIAL SEIZURES
     Dosage: 1800 MILLIGRAM, DAILY
     Route: 048
     Dates: start: 20190902
  4. RIVOTRIL [Suspect]
     Active Substance: CLONAZEPAM
     Indication: PARTIAL SEIZURES
     Dosage: 15 GTT DROPS, ONCE DAILY (QD)
     Route: 048

REACTIONS (3)
  - Head injury [Not Recovered/Not Resolved]
  - Epilepsy [Not Recovered/Not Resolved]
  - Drug ineffective [Unknown]

NARRATIVE: CASE EVENT DATE: 20191106
